FAERS Safety Report 8356747-8 (Version None)
Quarter: 2012Q2

REPORT INFORMATION
  Report Type: 
  Country: None (occurrence: None)
  Receive Date: 20120511
  Receipt Date: 20120511
  Transmission Date: 20120825
  Serious: Yes (Other)
  Sender: FDA-Public Use
  Company Number: None

PATIENT
  Age: 56 Year
  Sex: Female
  Weight: 68.9467 kg

DRUGS (2)
  1. TOVIAZ [Suspect]
     Indication: BLADDER PROLAPSE
     Dosage: TOVIAZ 8MG PO 1XDAY BEFORE CPE 9/14/11
     Route: 048
  2. TOVIAZ [Suspect]
     Indication: URINARY INCONTINENCE
     Dosage: TOVIAZ 8MG PO 1XDAY BEFORE CPE 9/14/11
     Route: 048

REACTIONS (5)
  - MYALGIA [None]
  - MYOSITIS [None]
  - RASH [None]
  - ANGIOEDEMA [None]
  - ARTHRALGIA [None]
